FAERS Safety Report 5088274-8 (Version None)
Quarter: 2006Q3

REPORT INFORMATION
  Report Type: 
  Country: None (occurrence: None)
  Receive Date: 20060727
  Receipt Date: 20060612
  Transmission Date: 20061208
  Serious: Yes (Other)
  Sender: FDA-Public Use
  Company Number: 2006076450

PATIENT
  Age: 54 Year
  Sex: Female
  Weight: 90.7194 kg

DRUGS (3)
  1. LYRICA [Suspect]
     Indication: FIBROMYALGIA
     Dosage: 2 IN 1 D
     Route: 065
     Dates: start: 20050101
  2. VITAMIN B12 [Concomitant]
  3. AMBIEN [Concomitant]

REACTIONS (7)
  - BURNING SENSATION [None]
  - FEELING ABNORMAL [None]
  - FIBROMYALGIA [None]
  - PAIN [None]
  - PAIN IN EXTREMITY [None]
  - SWELLING [None]
  - VISION BLURRED [None]
